FAERS Safety Report 17248742 (Version 3)
Quarter: 2020Q2

REPORT INFORMATION
  Report Type: Other
  Country: US (occurrence: US)
  Receive Date: 20200108
  Receipt Date: 20200416
  Transmission Date: 20200713
  Serious: Yes (Other)
  Sender: FDA-Public Use
  Company Number: US-INTERCEPT-PM2019000508

PATIENT
  Sex: Female

DRUGS (9)
  1. OCALIVA [Suspect]
     Active Substance: OBETICHOLIC ACID
     Dosage: 5 MG, QD
     Route: 048
     Dates: start: 201909
  2. OCALIVA [Suspect]
     Active Substance: OBETICHOLIC ACID
     Dosage: 5 MG, SUNDAY, MONDAY, WEDNESDAY, FRIDAY
     Route: 048
     Dates: start: 2019
  3. OCALIVA [Suspect]
     Active Substance: OBETICHOLIC ACID
     Dosage: 5 MG, QD
     Route: 048
     Dates: start: 20190313
  4. MECLIZINE HCL [Suspect]
     Active Substance: MECLIZINE HYDROCHLORIDE
     Indication: DIZZINESS
     Dosage: 12.5 MG, UNK
     Route: 048
  5. IRON [Concomitant]
     Active Substance: IRON
  6. VITAMIN D3 [Concomitant]
     Active Substance: CHOLECALCIFEROL
  7. OCALIVA [Suspect]
     Active Substance: OBETICHOLIC ACID
     Indication: PRIMARY BILIARY CHOLANGITIS
     Dosage: 5 MG, QD
     Route: 048
     Dates: start: 20190220, end: 201903
  8. OCALIVA [Suspect]
     Active Substance: OBETICHOLIC ACID
     Dosage: 5MG, MONDAY, WEDNESDAY, FRIDAY
     Route: 048
     Dates: start: 2019
  9. VITAMIN E [Concomitant]
     Active Substance: .ALPHA.-TOCOPHEROL

REACTIONS (16)
  - Deafness [Unknown]
  - Malaise [Unknown]
  - Abdominal pain upper [Unknown]
  - Pain in extremity [Not Recovered/Not Resolved]
  - Muscle spasms [Not Recovered/Not Resolved]
  - Pruritus [Unknown]
  - Hypoaesthesia [Unknown]
  - Tinnitus [Unknown]
  - Dizziness [Unknown]
  - Vertigo [Unknown]
  - Somnolence [Unknown]
  - Vomiting [Unknown]
  - Agitation [Recovering/Resolving]
  - Arthralgia [Unknown]
  - Headache [Unknown]
  - Weight decreased [Unknown]

NARRATIVE: CASE EVENT DATE: 2019
